FAERS Safety Report 6267853-6 (Version None)
Quarter: 2009Q3

REPORT INFORMATION
  Report Type: 
  Country: None (occurrence: None)
  Receive Date: 20090710
  Receipt Date: 20090710
  Transmission Date: 20100115
  Serious: No
  Sender: FDA-Public Use
  Company Number: None

PATIENT
  Age: 57 Year
  Sex: Male
  Weight: 83.9154 kg

DRUGS (1)
  1. ZICAM NASAL GEL LOT NUMBER 26459VMATRIX [Suspect]
     Indication: NASOPHARYNGITIS
     Dosage: ONE SPRAY ONCE NASAL
     Route: 045
     Dates: start: 20070613, end: 20070613

REACTIONS (5)
  - AGEUSIA [None]
  - ANOSMIA [None]
  - DEPRESSION [None]
  - NASAL MUCOSAL DISORDER [None]
  - THERMAL BURN [None]
